FAERS Safety Report 6522319-0 (Version None)
Quarter: 2009Q4

REPORT INFORMATION
  Report Type: 
  Country: None (occurrence: None)
  Receive Date: 20091230
  Receipt Date: 20091221
  Transmission Date: 20100525
  Serious: Yes (Other)
  Sender: FDA-Public Use
  Company Number: B0614860A

PATIENT
  Sex: Male

DRUGS (11)
  1. PAXIL [Suspect]
     Indication: DEPRESSION
     Dosage: 20MG PER DAY
     Route: 048
     Dates: start: 20091110
  2. LENDORMIN [Suspect]
     Indication: DRUG USE FOR UNKNOWN INDICATION
     Route: 048
  3. ROHYPNOL [Suspect]
     Indication: DRUG USE FOR UNKNOWN INDICATION
     Route: 065
  4. DALMANE [Suspect]
     Indication: DRUG USE FOR UNKNOWN INDICATION
     Dosage: 15MG PER DAY
     Route: 048
     Dates: start: 20091003
  5. ATARAX [Suspect]
     Indication: DRUG USE FOR UNKNOWN INDICATION
     Dosage: 25MG PER DAY
     Route: 048
     Dates: start: 20091003
  6. MUCOSTA [Suspect]
     Indication: DRUG USE FOR UNKNOWN INDICATION
     Route: 048
  7. AMARYL [Suspect]
     Indication: DRUG USE FOR UNKNOWN INDICATION
     Route: 048
  8. URSO 250 [Suspect]
     Indication: DRUG USE FOR UNKNOWN INDICATION
     Route: 048
  9. FLUNITRAZEPAM [Concomitant]
     Dosage: 1MG PER DAY
     Route: 048
     Dates: start: 20091003
  10. UNKNOWN [Concomitant]
     Dosage: 1MG PER DAY
     Dates: start: 20091003
  11. ZESTROMIN [Concomitant]
     Dosage: .25MG PER DAY
     Route: 048
     Dates: start: 20091003

REACTIONS (5)
  - ACTIVATION SYNDROME [None]
  - AGGRESSION [None]
  - HOSTILITY [None]
  - IRRITABILITY [None]
  - PHYSICAL ASSAULT [None]
